FAERS Safety Report 6124983-7 (Version None)
Quarter: 2009Q1

REPORT INFORMATION
  Report Type: 
  Country: None (occurrence: None)
  Receive Date: 20090319
  Receipt Date: 20090310
  Transmission Date: 20090719
  Serious: Yes (Death)
  Sender: FDA-Public Use
  Company Number: US-AMGEN-US337803

PATIENT
  Sex: Female

DRUGS (4)
  1. NPLATE [Suspect]
     Indication: IDIOPATHIC THROMBOCYTOPENIC PURPURA
     Route: 065
     Dates: start: 20080924, end: 20081021
  2. CORTICOSTEROID NOS [Concomitant]
     Route: 065
     Dates: start: 20080901
  3. IMMUNOGLOBULINS [Concomitant]
     Route: 042
     Dates: end: 20080901
  4. RITUXIMAB [Concomitant]
     Route: 065
     Dates: start: 20070626

REACTIONS (1)
  - DEATH [None]
